FAERS Safety Report 11446452 (Version 1)
Quarter: 2015Q3

REPORT INFORMATION
  Report Type: Spontaneous
  Country: US (occurrence: US)
  Receive Date: 20150831
  Receipt Date: 20150831
  Transmission Date: 20151125
  Serious: No
  Sender: FDA-Public Use
  Company Number: US-ELI_LILLY_AND_COMPANY-US200810003294

PATIENT
  Sex: Female

DRUGS (2)
  1. CYMBALTA [Suspect]
     Active Substance: DULOXETINE HYDROCHLORIDE
     Indication: FIBROMYALGIA
     Dosage: 30 MG, UNK
     Route: 048
     Dates: start: 20080806, end: 20080812
  2. CYMBALTA [Suspect]
     Active Substance: DULOXETINE HYDROCHLORIDE
     Dosage: 60 MG, DAILY (1/D)
     Dates: start: 20080813

REACTIONS (9)
  - Insomnia [Unknown]
  - Paraesthesia [Unknown]
  - Weight decreased [Unknown]
  - Arthropathy [Unknown]
  - Limb injury [Unknown]
  - Crying [Unknown]
  - Contusion [Unknown]
  - Gait disturbance [Unknown]
  - Foot fracture [Unknown]
